FAERS Safety Report 21999567 (Version 3)
Quarter: 2025Q4

REPORT INFORMATION
  Report Type: Spontaneous
  Country: US (occurrence: US)
  Receive Date: 20230216
  Receipt Date: 20251208
  Transmission Date: 20260117
  Serious: Yes (Other)
  Sender: PFIZER
  Company Number: US-PFIZER INC-PV202300016680

PATIENT
  Age: 83 Year
  Sex: Male

DRUGS (2)
  1. BENEFIX [Suspect]
     Active Substance: COAGULATION FACTOR IX RECOMBINANT HUMAN\ISOPROPYL ALCOHOL
     Indication: Haemorrhage prophylaxis
     Dosage: 6000 IU, AS NEEDED (+/-10% SLOW I.V. PUSH. PRN EVERY 12-24 HOURS) WHEN DIRECTED BY HTC
  2. BENEFIX [Suspect]
     Active Substance: COAGULATION FACTOR IX RECOMBINANT HUMAN\ISOPROPYL ALCOHOL
     Dosage: 3,000 UNIT100 IU/KG6,950 UNITS INTO A VENOUS CATHETER ONCE EVERY 24 HOURS.6950 UNITS +/- 10%
     Route: 042

REACTIONS (1)
  - Heart valve operation [Unknown]
